FAERS Safety Report 12599853 (Version 1)
Quarter: 2016Q3

REPORT INFORMATION
  Report Type: Spontaneous
  Country: GB (occurrence: GB)
  Receive Date: 20160727
  Receipt Date: 20160727
  Transmission Date: 20161109
  Serious: Yes (Other)
  Sender: FDA-Public Use
  Company Number: GB-PFIZER INC-2016354210

PATIENT
  Age: 40 Year
  Sex: Female
  Weight: 82.55 kg

DRUGS (16)
  1. ORAMORPH [Interacting]
     Active Substance: MORPHINE SULFATE
     Dosage: UNK
  2. LACTULOSE. [Concomitant]
     Active Substance: LACTULOSE
  3. MONTELUKAST [Concomitant]
     Active Substance: MONTELUKAST SODIUM
  4. AMITRIPTYLINE [Concomitant]
     Active Substance: AMITRIPTYLINE
  5. COSMOCOL [Concomitant]
  6. LYRICA [Suspect]
     Active Substance: PREGABALIN
     Dosage: 150MG AND 300MG
  7. CHLORHEXIDINE GLUCONATE. [Interacting]
     Active Substance: CHLORHEXIDINE GLUCONATE
     Indication: MOUTH ULCERATION
     Dosage: 10 ML, 2X/DAY
     Route: 048
     Dates: start: 20160708, end: 20160708
  8. PREDNISOLONE. [Interacting]
     Active Substance: PREDNISOLONE
     Dosage: UNK
  9. SALBUTAMOL [Interacting]
     Active Substance: ALBUTEROL
     Dosage: UNK
     Route: 055
  10. CYCLIZINE [Interacting]
     Active Substance: CYCLIZINE
     Dosage: AMPOULES
     Route: 030
  11. PHENOXYMETHYLPENICILLIN [Concomitant]
     Active Substance: PENICILLIN V
  12. DIHYDROCODEINE [Interacting]
     Active Substance: DIHYDROCODEINE
     Dosage: UNK
  13. LORATADINE. [Interacting]
     Active Substance: LORATADINE
     Dosage: UNK
  14. SERETIDE [Interacting]
     Active Substance: FLUTICASONE PROPIONATE\SALMETEROL XINAFOATE
     Dosage: UNK
     Route: 055
  15. ADCAL D3 [Concomitant]
     Active Substance: CALCIUM CARBONATE\CHOLECALCIFEROL
  16. ALENDRONIC ACID [Concomitant]
     Active Substance: ALENDRONIC ACID

REACTIONS (7)
  - Drug interaction [Unknown]
  - Swelling face [Recovering/Resolving]
  - Feeling drunk [Recovering/Resolving]
  - Oxygen saturation decreased [Recovering/Resolving]
  - Asthma [Recovering/Resolving]
  - Feeling abnormal [Recovering/Resolving]
  - Oral discomfort [Recovering/Resolving]

NARRATIVE: CASE EVENT DATE: 20160708
